FAERS Safety Report 6790339-7 (Version None)
Quarter: 2010Q2

REPORT INFORMATION
  Report Type: 
  Country: None (occurrence: None)
  Receive Date: 20100624
  Receipt Date: 20070921
  Transmission Date: 20101027
  Serious: No
  Sender: FDA-Public Use
  Company Number: US-PFIZER INC-2007069033

PATIENT
  Sex: Female

DRUGS (3)
  1. PROVERA [Suspect]
     Indication: OFF LABEL USE
  2. UROFOLLITROPIN [Suspect]
  3. OVIDREL [Suspect]

REACTIONS (1)
  - ANOVULATORY CYCLE [None]
